FAERS Safety Report 8595529-9 (Version None)
Quarter: 2012Q3

REPORT INFORMATION
  Report Type: 
  Country: None (occurrence: None)
  Receive Date: 20120815
  Receipt Date: 20120705
  Transmission Date: 20120928
  Serious: Yes (Other)
  Sender: FDA-Public Use
  Company Number: US-009507513-1207GBR002376

PATIENT

DRUGS (24)
  1. MIRTAZAPINE [Suspect]
     Indication: DEPRESSION
     Dosage: 30 MG, QD
     Route: 048
     Dates: start: 20090601
  2. MIRTAZAPINE [Suspect]
     Indication: INSOMNIA
  3. METOCLOPRAMIDE [Concomitant]
     Indication: GASTROOESOPHAGEAL REFLUX DISEASE
     Dosage: 40 MG, QD
     Route: 048
     Dates: start: 19980701, end: 20110115
  4. SUDOCREM [Concomitant]
     Indication: RASH
     Dosage: 1 OTHER AS NEEDED
     Dates: start: 20000701
  5. SIMVASTATIN [Concomitant]
     Indication: BLOOD CHOLESTEROL INCREASED
     Dosage: 5 MG, QD
     Route: 048
     Dates: start: 20050705
  6. SEROQUEL [Concomitant]
     Indication: AGITATION
     Dosage: 75 MG, QD
     Route: 048
     Dates: start: 20090415
  7. SEROQUEL [Concomitant]
     Indication: HALLUCINATION, AUDITORY
  8. DIVALPROEX SODIUM [Concomitant]
     Indication: CONVULSION
     Dosage: 5000 MG, QD
     Route: 048
     Dates: start: 19720304
  9. ZOLPIDEM TARTRATE [Concomitant]
     Indication: INSOMNIA
     Dosage: 25 MG, UNK
     Route: 048
     Dates: start: 20010218, end: 20090825
  10. PRIMIDONE [Concomitant]
     Indication: CONVULSION
     Dosage: 1000 MG, QD
     Route: 048
     Dates: start: 19950604, end: 20090826
  11. CLOPIDOGREL [Concomitant]
     Indication: ANTICOAGULANT THERAPY
     Dosage: 75 MG, UNK
     Route: 048
     Dates: start: 19960706
  12. PHENYTOIN [Concomitant]
     Indication: CONVULSION
     Dosage: UNK, QD
     Route: 048
     Dates: start: 19940427
  13. AMLODIPINE [Concomitant]
     Indication: MYOCARDIAL ISCHAEMIA
     Dosage: 10 MG, QD
     Route: 048
     Dates: start: 19970410
  14. SEROQUEL [Concomitant]
     Indication: SELF-INJURIOUS IDEATION
  15. DIVALPROEX SODIUM [Concomitant]
     Indication: BIPOLAR DISORDER
  16. CLOBAZAM [Concomitant]
     Indication: CONVULSION
     Dosage: 30 MG, QD
     Dates: start: 19911003
  17. ANUSOL (PRAMOXINE HYDROCHLORIDE (+) ZINC OXIDE) [Concomitant]
     Indication: HAEMORRHOIDS
  18. CLOTRIMAZOLE [Concomitant]
     Dosage: 2 OTHER AS NEEDED
     Dates: start: 20080701
  19. MIRTAZAPINE [Suspect]
     Indication: SELF-INJURIOUS IDEATION
  20. NITROGLYCERIN [Concomitant]
     Indication: MYOCARDIAL ISCHAEMIA
     Dosage: 0.4 MG, PRN
     Dates: start: 19950904
  21. RANITIDINE [Concomitant]
     Indication: GASTROOESOPHAGEAL REFLUX DISEASE
     Dosage: 300 MG, UNK
     Route: 048
     Dates: start: 19980305, end: 20110203
  22. ANUSOL (PRAMOXINE HYDROCHLORIDE (+) ZINC OXIDE) [Concomitant]
     Indication: PRURITUS
     Dosage: 1 %, PRN
     Dates: start: 19980701
  23. AMLODIPINE BESYLATE AND BENAZEPRIL HYDROCHLORIDE [Concomitant]
     Indication: HYPERTENSION
     Dosage: 5 MG - 10 MG, QD
     Route: 048
     Dates: start: 20081015, end: 20120430
  24. HALOPERIDOL [Concomitant]
     Indication: SCHIZOTYPAL PERSONALITY DISORDER
     Dosage: 10 MG, PRN
     Dates: start: 20090509, end: 20090827

REACTIONS (10)
  - CIRCADIAN RHYTHM SLEEP DISORDER [None]
  - DELAYED SLEEP PHASE [None]
  - SCHIZOTYPAL PERSONALITY DISORDER [None]
  - DRY MOUTH [None]
  - CATARACT [None]
  - DIVERTICULUM [None]
  - IDIOPATHIC PULMONARY FIBROSIS [None]
  - THROMBOTIC THROMBOCYTOPENIC PURPURA [None]
  - BIPOLAR DISORDER [None]
  - INSOMNIA [None]
